FAERS Safety Report 11990499 (Version 2)
Quarter: 2016Q1

REPORT INFORMATION
  Report Type: Spontaneous
  Country: LV (occurrence: LV)
  Receive Date: 20160202
  Receipt Date: 20160208
  Transmission Date: 20160526
  Serious: Yes (Life-Threatening, Other)
  Sender: FDA-Public Use
  Company Number: LV-PFIZER INC-2016054395

PATIENT
  Age: 7 Year
  Sex: Female

DRUGS (8)
  1. PULMICORT TURBUHALER [Concomitant]
     Active Substance: BUDESONIDE
     Indication: ASTHMA
     Dosage: 0.5 MG, 2X/DAY
     Route: 055
  2. METHYLPREDNISOLONE. [Suspect]
     Active Substance: METHYLPREDNISOLONE
     Indication: NEPHROTIC SYNDROME
     Dosage: 16 MG, 1X/DAY
     Route: 048
     Dates: end: 20151130
  3. BUDESONIDUM [Concomitant]
     Active Substance: BUDESONIDE
     Indication: ASTHMA
     Dosage: UNK
     Route: 055
  4. SALBUTAMOLUM [Concomitant]
     Active Substance: ALBUTEROL
     Indication: ASTHMA
     Dosage: 0.4 ML, 4X/DAY
     Route: 055
     Dates: start: 20151130
  5. SOLU-MEDROL [Suspect]
     Active Substance: METHYLPREDNISOLONE SODIUM SUCCINATE
     Indication: ASTHMA
     Dosage: 26 MG (1MG/KG) 2X/DAY
     Route: 042
     Dates: start: 20151204, end: 20151206
  6. METHYLPREDNISOLONE. [Suspect]
     Active Substance: METHYLPREDNISOLONE
     Indication: ASTHMA
     Dosage: 26 MG, 2X/DAY
     Route: 048
     Dates: start: 20151201, end: 20151203
  7. IPRATROPII BROMIDUM [Concomitant]
     Indication: ASTHMA
     Dosage: 0.5 ML, 4X/DAY
     Route: 055
     Dates: start: 20151130
  8. FLIXOTIDE [Concomitant]
     Active Substance: FLUTICASONE PROPIONATE
     Dosage: 250 MCG TWICE A DAY
     Dates: start: 20151207

REACTIONS (6)
  - Seizure [Recovered/Resolved]
  - Brain injury [Not Recovered/Not Resolved]
  - Gastroenteritis norovirus [Unknown]
  - Aspiration [Recovered/Resolved]
  - Cardiac arrest [Recovered/Resolved]
  - Loss of consciousness [Recovered/Resolved]

NARRATIVE: CASE EVENT DATE: 20151204
